FAERS Safety Report 4998045-6 (Version None)
Quarter: 2006Q2

REPORT INFORMATION
  Report Type: 
  Country: None (occurrence: None)
  Receive Date: 20060510
  Receipt Date: 20060504
  Transmission Date: 20061013
  Serious: Yes (Hospitalization, Other)
  Sender: FDA-Public Use
  Company Number: GB-JNJFOC-20060501774

PATIENT
  Age: 30 Year
  Sex: Female

DRUGS (2)
  1. RISPERDAL [Suspect]
     Route: 048
  2. ZOPICLONE [Concomitant]
     Indication: SEDATIVE THERAPY

REACTIONS (3)
  - DRUG EXPOSURE DURING PREGNANCY [None]
  - EUPHORIC MOOD [None]
  - SUPPRESSED LACTATION [None]
